FAERS Safety Report 7288993-9 (Version None)
Quarter: 2011Q1

REPORT INFORMATION
  Report Type: 
  Country: None (occurrence: None)
  Receive Date: 20110211
  Receipt Date: 20110128
  Transmission Date: 20110831
  Serious: Yes (Hospitalization)
  Sender: FDA-Public Use
  Company Number: PHHY2011IT07453

PATIENT
  Sex: Female

DRUGS (7)
  1. OMNITROPE [Suspect]
     Dosage: UNK
  2. XELODA [Suspect]
     Indication: COLON CANCER
     Dosage: 500 MG, CYCLIC DOSAGE 2500MG
     Dates: start: 20091002
  3. ALENDRONIC ACID [Concomitant]
     Indication: OSTEOPOROSIS
     Dosage: 700 MG, UNK
     Route: 048
  4. OXALIPLATINO EBEWE [Suspect]
     Indication: COLON CANCER
     Dosage: 5 MG/ML, 180MG CYCLIC DOSAGE
     Route: 042
     Dates: start: 20091002, end: 20091023
  5. CLONAZEPAM [Concomitant]
     Dosage: UNK, 3 DRPS
     Route: 048
  6. PANTOPRAZOLE [Concomitant]
     Dosage: 30 MG, UNK
  7. CALCITRIOL [Concomitant]
     Dosage: 0.5 UG, UNK
     Route: 048

REACTIONS (6)
  - OESOPHAGEAL CANDIDIASIS [None]
  - VOMITING [None]
  - GASTRITIS [None]
  - PALMAR-PLANTAR ERYTHRODYSAESTHESIA SYNDROME [None]
  - GASTROINTESTINAL HYPOMOTILITY [None]
  - ABDOMINAL PAIN [None]
